FAERS Safety Report 6301814-3 (Version None)
Quarter: 2009Q3

REPORT INFORMATION
  Report Type: 
  Country: None (occurrence: None)
  Receive Date: 20090807
  Receipt Date: 20090730
  Transmission Date: 20100115
  Serious: Yes (Other)
  Sender: FDA-Public Use
  Company Number: FR-AVENTIS-200912871FR

PATIENT
  Age: 70 Year
  Sex: Female

DRUGS (2)
  1. KETEK [Suspect]
     Route: 048
     Dates: start: 20090701, end: 20090721
  2. LOPRESSOR [Concomitant]
     Route: 048

REACTIONS (3)
  - CHEST PAIN [None]
  - OESOPHAGITIS [None]
  - RASH [None]
